FAERS Safety Report 15315887 (Version 1)
Quarter: 2018Q3

REPORT INFORMATION
  Report Type: Spontaneous
  Country: US (occurrence: US)
  Receive Date: 20180816
  Receipt Date: 20180816
  Transmission Date: 20181010
  Serious: No
  Sender: FDA-Public Use
  Company Number: None

PATIENT
  Age: 32 Year
  Sex: Female
  Weight: 75.75 kg

DRUGS (1)
  1. GLATIRAMER ACETATE PFS 40MG/ML MYLAN [Suspect]
     Active Substance: GLATIRAMER ACETATE
     Indication: MULTIPLE SCLEROSIS
     Dates: start: 20180730, end: 20180806

REACTIONS (3)
  - Injection site erythema [None]
  - Injection site mass [None]
  - Injection site warmth [None]

NARRATIVE: CASE EVENT DATE: 20180730
